FAERS Safety Report 9011984 (Version 2)
Quarter: 2013Q1

REPORT INFORMATION
  Report Type: Spontaneous
  Country: JP (occurrence: JP)
  Receive Date: 20130114
  Receipt Date: 20130213
  Transmission Date: 20140127
  Serious: Yes (Other)
  Sender: FDA-Public Use
  Company Number: JP-TEVA-2011002111

PATIENT
  Age: 55 Year
  Sex: Male

DRUGS (16)
  1. BENDAMUSTINE [Suspect]
     Indication: B-CELL LYMPHOMA
     Route: 042
     Dates: start: 20110323, end: 20110324
  2. BENDAMUSTINE [Suspect]
     Route: 042
     Dates: start: 20110420, end: 20110421
  3. BENDAMUSTINE [Suspect]
     Route: 042
     Dates: start: 20110525, end: 20110526
  4. BENDAMUSTINE [Suspect]
     Route: 042
     Dates: start: 20110713, end: 20110714
  5. BENDAMUSTINE [Suspect]
     Route: 042
     Dates: start: 20110824, end: 20110825
  6. BENDAMUSTINE [Suspect]
     Route: 042
     Dates: start: 20110921, end: 20110922
  7. BENDAMUSTINE [Suspect]
     Route: 042
     Dates: start: 20111121, end: 20111122
  8. BENDAMUSTINE [Suspect]
     Route: 042
     Dates: start: 20120204, end: 20120205
  9. RITUXIMAB [Suspect]
     Indication: B-CELL LYMPHOMA
     Route: 042
     Dates: start: 20110322, end: 20110322
  10. RITUXIMAB [Suspect]
     Route: 042
     Dates: start: 20110419
  11. RITUXIMAB [Suspect]
     Route: 042
     Dates: start: 20110524
  12. RITUXIMAB [Suspect]
     Route: 042
     Dates: start: 20110712
  13. RITUXIMAB [Suspect]
     Route: 042
     Dates: start: 20110823
  14. RITUXIMAB [Suspect]
     Route: 042
     Dates: start: 20110920
  15. RITUXIMAB [Suspect]
     Route: 042
     Dates: start: 20111120
  16. RITUXIMAB [Suspect]
     Route: 042
     Dates: start: 20120203

REACTIONS (2)
  - Vasculitis [Recovered/Resolved]
  - Lymphocyte count decreased [Recovering/Resolving]
